FAERS Safety Report 25223240 (Version 3)
Quarter: 2025Q4

REPORT INFORMATION
  Report Type: Spontaneous
  Country: US (occurrence: US)
  Receive Date: 20250422
  Receipt Date: 20251103
  Transmission Date: 20260118
  Serious: Yes (Death, Other)
  Sender: DR REDDYS
  Company Number: US-DRL-USA-USA/2025/04/005129

PATIENT
  Age: 96 Year
  Sex: Female
  Weight: 54 kg

DRUGS (10)
  1. ESZOPICLONE [Suspect]
     Active Substance: ESZOPICLONE
     Indication: Relaxation therapy
     Route: 065
     Dates: start: 202309, end: 20231029
  2. RAMELTEON [Suspect]
     Active Substance: RAMELTEON
     Indication: Relaxation therapy
     Route: 065
  3. AMBIEN [Suspect]
     Active Substance: ZOLPIDEM TARTRATE
     Indication: Relaxation therapy
     Dosage: AT BEDTIME
     Route: 004
     Dates: start: 2023
  4. ZALEPLON [Suspect]
     Active Substance: ZALEPLON
     Indication: Relaxation therapy
     Route: 065
  5. MELATONIN [Suspect]
     Active Substance: MELATONIN
     Indication: Relaxation therapy
     Route: 065
  6. VALIUM [Suspect]
     Active Substance: DIAZEPAM
     Indication: Relaxation therapy
     Route: 065
  7. ATIVAN [Suspect]
     Active Substance: LORAZEPAM
     Indication: Relaxation therapy
     Route: 065
  8. RESTORIL [Suspect]
     Active Substance: TEMAZEPAM
     Indication: Relaxation therapy
     Route: 065
     Dates: start: 202309
  9. METHOCARBAMOL [Suspect]
     Active Substance: METHOCARBAMOL
     Indication: Relaxation therapy
     Route: 065
  10. DIPHENHYDRAMINE HYDROCHLORIDE [Suspect]
     Active Substance: DIPHENHYDRAMINE HYDROCHLORIDE
     Indication: Relaxation therapy
     Route: 065

REACTIONS (3)
  - Overdose [Fatal]
  - Cardiac arrest [Fatal]
  - Failure to thrive [Fatal]

NARRATIVE: CASE EVENT DATE: 20231010
